FAERS Safety Report 8066617-0 (Version None)
Quarter: 2012Q1

REPORT INFORMATION
  Report Type: 
  Country: None (occurrence: None)
  Receive Date: 20120124
  Receipt Date: 20120113
  Transmission Date: 20120608
  Serious: Yes (Hospitalization)
  Sender: FDA-Public Use
  Company Number: PHHY2011US45615

PATIENT
  Sex: Female

DRUGS (2)
  1. GLEEVEC [Suspect]
     Indication: CHRONIC MYELOID LEUKAEMIA
     Dosage: 400 MG, DAILY
     Route: 048
     Dates: start: 20110325
  2. GLEEVEC [Suspect]
     Dosage: 400 MG, DAILY
     Route: 048

REACTIONS (3)
  - VOMITING [None]
  - MALNUTRITION [None]
  - NAUSEA [None]
